FAERS Safety Report 5637206-X (Version None)
Quarter: 2008Q1

REPORT INFORMATION
  Report Type: 
  Country: None (occurrence: None)
  Receive Date: 20080225
  Receipt Date: 20080212
  Transmission Date: 20080703
  Serious: Yes (Hospitalization)
  Sender: FDA-Public Use
  Company Number: FR-AVENTIS-200810617FR

PATIENT
  Age: 80 Year
  Sex: Male

DRUGS (13)
  1. OFLOCET                            /00731801/ [Suspect]
     Indication: OSTEITIS
     Dates: start: 20070628, end: 20070714
  2. LOVENOX [Suspect]
     Indication: PROPHYLAXIS
     Dates: start: 20070628, end: 20070713
  3. AUGMENTIN '125' [Suspect]
     Indication: OSTEITIS
     Dates: start: 20070628, end: 20070714
  4. COLCHIMAX (FRANCE) [Suspect]
     Dates: start: 20070706, end: 20070710
  5. FOZITEC                            /00915301/ [Suspect]
     Indication: HYPERTENSION
     Dates: end: 20070713
  6. ALLOPURINOL [Suspect]
     Dates: end: 20070710
  7. NOVONORM [Concomitant]
  8. HEMIGOXINE [Concomitant]
  9. LASILIX                            /00032601/ [Concomitant]
  10. PREVISCAN                          /00789001/ [Concomitant]
     Dates: end: 20070627
  11. PREVISCAN                          /00789001/ [Concomitant]
     Dates: start: 20070705
  12. TAKADOL [Concomitant]
  13. VENOFER [Concomitant]
     Dates: start: 20070811

REACTIONS (4)
  - NORMOCHROMIC NORMOCYTIC ANAEMIA [None]
  - PURPURA [None]
  - RENAL FAILURE ACUTE [None]
  - THROMBOCYTOPENIA [None]
